FAERS Safety Report 5365510-1 (Version None)
Quarter: 2007Q2

REPORT INFORMATION
  Report Type: 
  Country: None (occurrence: None)
  Receive Date: 20070621
  Receipt Date: 20070615
  Transmission Date: 20071010
  Serious: Yes (Other)
  Sender: FDA-Public Use
  Company Number: A0649735A

PATIENT
  Age: 32 Year
  Sex: Male
  Weight: 81.4 kg

DRUGS (2)
  1. WELLBUTRIN XL [Suspect]
     Route: 048
     Dates: start: 20070412, end: 20070426
  2. BUPROPION HYDROCHLORIDE [Suspect]
     Dosage: 150MG TWICE PER DAY
     Route: 048
     Dates: start: 20070426, end: 20070428

REACTIONS (10)
  - ANXIETY [None]
  - ARTHROPATHY [None]
  - GENERALISED OEDEMA [None]
  - HENOCH-SCHONLEIN PURPURA [None]
  - OEDEMA [None]
  - OFF LABEL USE [None]
  - PHARYNGEAL OEDEMA [None]
  - RASH PRURITIC [None]
  - SKIN LESION [None]
  - STEVENS-JOHNSON SYNDROME [None]
